FAERS Safety Report 7369087-0 (Version None)
Quarter: 2011Q1

REPORT INFORMATION
  Report Type: 
  Country: None (occurrence: None)
  Receive Date: 20110309
  Receipt Date: 20110301
  Transmission Date: 20110831
  Serious: Yes (Hospitalization, Disabling)
  Sender: FDA-Public Use
  Company Number: 2010SP040550

PATIENT
  Age: 36 Year
  Sex: Female
  Weight: 86.1834 kg

DRUGS (5)
  1. NUVARING [Suspect]
     Indication: CONTRACEPTION
     Dates: start: 20070810, end: 20080814
  2. LEXAPRO [Suspect]
     Indication: ANXIETY
  3. ADVIL LIQUI-GELS [Concomitant]
  4. MARIJUANA [Concomitant]
  5. DILANTIN [Suspect]
     Indication: CONVULSION

REACTIONS (20)
  - DEPRESSION [None]
  - MULTIPLE INJURIES [None]
  - NAUSEA [None]
  - INTRACRANIAL VENOUS SINUS THROMBOSIS [None]
  - HEPATIC ENZYME INCREASED [None]
  - THROMBOSIS [None]
  - JAW DISORDER [None]
  - CONVULSION [None]
  - TRANSVERSE SINUS THROMBOSIS [None]
  - CEREBRAL HAEMORRHAGE [None]
  - SINUS CONGESTION [None]
  - POST-TRAUMATIC STRESS DISORDER [None]
  - ABDOMINAL PAIN [None]
  - INSOMNIA [None]
  - BLOOD BICARBONATE DECREASED [None]
  - NECK PAIN [None]
  - CHOLELITHIASIS [None]
  - SCOTOMA [None]
  - DYSMENORRHOEA [None]
  - CEREBROVASCULAR ACCIDENT [None]
